FAERS Safety Report 6910417-9 (Version None)
Quarter: 2010Q3

REPORT INFORMATION
  Report Type: 
  Country: None (occurrence: None)
  Receive Date: 20100806
  Receipt Date: 20100726
  Transmission Date: 20110219
  Serious: Yes (Other)
  Sender: FDA-Public Use
  Company Number: US-PFIZER INC-2010094135

PATIENT
  Sex: Male
  Weight: 90.7 kg

DRUGS (4)
  1. LYRICA [Suspect]
     Indication: ARTHRALGIA
     Dosage: 50 MG, 3X/DAY
     Route: 048
     Dates: start: 20100701
  2. LYRICA [Suspect]
     Indication: PAIN IN EXTREMITY
  3. IBUPROFEN [Concomitant]
     Indication: BACK PAIN
     Dosage: UNK
  4. IBUPROFEN [Concomitant]
     Indication: PAIN IN EXTREMITY

REACTIONS (5)
  - ARTHRITIS [None]
  - DIZZINESS [None]
  - FATIGUE [None]
  - JOINT SWELLING [None]
  - OEDEMA PERIPHERAL [None]
